FAERS Safety Report 6438004-X (Version None)
Quarter: 2009Q4

REPORT INFORMATION
  Report Type: 
  Country: None (occurrence: None)
  Receive Date: 20091112
  Receipt Date: 20091105
  Transmission Date: 20100525
  Serious: Yes (Other)
  Sender: FDA-Public Use
  Company Number: FR-PFIZER INC-2009293828

PATIENT
  Age: 60 Year
  Sex: Female

DRUGS (10)
  1. HYDROXYZINE HCL [Suspect]
     Dosage: 100 MG, UNK
     Route: 042
  2. METHYLPREDNISOLONE [Concomitant]
     Dosage: 80 MG, UNK
  3. PROPOFOL [Concomitant]
     Indication: GENERAL ANAESTHESIA
     Route: 042
  4. MIDAZOLAM [Concomitant]
     Indication: GENERAL ANAESTHESIA
     Route: 042
  5. SUFENTANIL [Concomitant]
     Indication: GENERAL ANAESTHESIA
     Route: 042
  6. SEVOFLURANE [Concomitant]
     Indication: ANAESTHESIA
  7. LOSARTAN [Concomitant]
  8. LEVOTHYROXINE [Concomitant]
  9. FENOFIBRATE [Concomitant]
  10. LORAZEPAM [Concomitant]
     Dosage: UNK

REACTIONS (1)
  - ANAPHYLACTIC REACTION [None]
